FAERS Safety Report 20205112 (Version 1)
Quarter: 2021Q4

REPORT INFORMATION
  Report Type: Spontaneous
  Country: US (occurrence: None)
  Receive Date: 20211220
  Receipt Date: 20211220
  Transmission Date: 20220303
  Serious: Yes (Hospitalization)
  Sender: FDA-Public Use
  Company Number: US-MDD US Operations-SUP202105-000948

PATIENT
  Age: 47 Year
  Sex: Female
  Weight: 89.8 kg

DRUGS (3)
  1. OXTELLAR XR [Suspect]
     Active Substance: OXCARBAZEPINE
     Indication: Epilepsy
     Dosage: NOT PROVIDED
  2. ZOFRAN [Concomitant]
     Active Substance: ONDANSETRON HYDROCHLORIDE
     Indication: Nausea
     Dosage: NOT PROVIDED
  3. ENSTILAR [Concomitant]
     Active Substance: BETAMETHASONE DIPROPIONATE\CALCIPOTRIENE HYDRATE
     Indication: Pain
     Dosage: NOT PROVIDED

REACTIONS (2)
  - Nephrolithiasis [Unknown]
  - Therapeutic product effect decreased [Unknown]
